FAERS Safety Report 9773045 (Version 3)
Quarter: 2014Q2

REPORT INFORMATION
  Report Type: Spontaneous
  Country: US (occurrence: US)
  Receive Date: 20131219
  Receipt Date: 20140415
  Transmission Date: 20141212
  Serious: No
  Sender: FDA-Public Use
  Company Number: US-PFIZER INC-2013362918

PATIENT
  Age: 66 Year
  Sex: Female
  Weight: 54.88 kg

DRUGS (3)
  1. DILANTIN [Suspect]
     Indication: HEAD INJURY
     Dosage: 300 MG, 1X/DAY AT NIGHT
     Route: 048
     Dates: start: 201309
  2. DILANTIN [Suspect]
     Indication: CONVULSION
  3. ASPIRIN [Concomitant]
     Dosage: UNK

REACTIONS (13)
  - Head discomfort [Not Recovered/Not Resolved]
  - Balance disorder [Unknown]
  - Dizziness [Unknown]
  - Tremor [Unknown]
  - Drug intolerance [Not Recovered/Not Resolved]
  - Headache [Not Recovered/Not Resolved]
  - Nausea [Not Recovered/Not Resolved]
  - Photopsia [Not Recovered/Not Resolved]
  - Dyskinesia [Not Recovered/Not Resolved]
  - Malaise [Unknown]
  - Headache [Unknown]
  - Feeling abnormal [Unknown]
  - Product quality issue [Unknown]
